FAERS Safety Report 10409498 (Version 1)
Quarter: 2014Q2

REPORT INFORMATION
  Report Type: Spontaneous
  Country: US (occurrence: None)
  Receive Date: 20140604
  Receipt Date: 20140604
  Transmission Date: 20141212
  Serious: Yes (Other)
  Sender: FDA-Public Use
  Company Number: 163-POMAL-14023768

PATIENT
  Age: 59 Year
  Sex: Male

DRUGS (5)
  1. POMALYST (POMALIDOMIDE) (4 MILLIGRAM, CAPSULES) [Suspect]
     Indication: PLASMA CELL MYELOMA
     Dosage: 21 IN 21D
     Route: 048
     Dates: start: 20140218, end: 20140222
  2. SOMA (CARISOPRODOL) [Concomitant]
  3. DECADRON (DEXAMETHASONE) [Concomitant]
  4. NEURONTIN (GABAPENTIN) [Concomitant]
  5. MS CONTIN (MORPHINE SULFATE) [Concomitant]

REACTIONS (2)
  - Abdominal pain upper [None]
  - Back pain [None]
